FAERS Safety Report 20107990 (Version 1)
Quarter: 2021Q4

REPORT INFORMATION
  Report Type: Spontaneous
  Country: US (occurrence: US)
  Receive Date: 20211124
  Receipt Date: 20211124
  Transmission Date: 20220303
  Serious: No
  Sender: FDA-Public Use
  Company Number: US-KERYX BIOPHARMACEUTICALS INC.-2020US007088

PATIENT
  Age: 65 Year
  Sex: Female
  Weight: 93.424 kg

DRUGS (1)
  1. AURYXIA [Suspect]
     Active Substance: TETRAFERRIC TRICITRATE DECAHYDRATE
     Indication: Hyperphosphataemia
     Dosage: 3 GRAM, (210 MG) - 3 TABLETS Q MEAL) QD
     Route: 048

REACTIONS (1)
  - Gastrointestinal tract mucosal pigmentation [Recovered/Resolved]

NARRATIVE: CASE EVENT DATE: 20200929
